FAERS Safety Report 22193996 (Version 1)
Quarter: 2023Q2

REPORT INFORMATION
  Report Type: Spontaneous
  Country: IT (occurrence: IT)
  Receive Date: 20230411
  Receipt Date: 20230411
  Transmission Date: 20230721
  Serious: Yes (Life-Threatening, Other)
  Sender: FDA-Public Use
  Company Number: None

PATIENT
  Age: 80 Year
  Sex: Female

DRUGS (10)
  1. CALCIUM CHLORIDE\POTASSIUM CHLORIDE\SODIUM CHLORIDE\SODIUM LACTATE [Suspect]
     Active Substance: CALCIUM CHLORIDE\POTASSIUM CHLORIDE\SODIUM CHLORIDE\SODIUM LACTATE
     Indication: Infusion
     Dosage: 2000 MILLILITERS (ML), UNSPECIFIED FREQUENCY
     Route: 042
     Dates: start: 20230307, end: 20230307
  2. SUPRANE [Suspect]
     Active Substance: DESFLURANE
     Indication: General anaesthesia
     Dosage: (DOSAGE FORM: INHALATION SOLUTION), UNSPECIFIED DOSE AND FREQUENCY
     Dates: start: 20230307, end: 20230307
  3. ROCURONIUM BROMIDE [Suspect]
     Active Substance: ROCURONIUM BROMIDE
     Indication: Neuromuscular blockade
     Dosage: 30 MILLIGRAMS (MG), UNSPECIFIED FREQUENCY
     Route: 042
     Dates: start: 20230307, end: 20230307
  4. PROPOFOL [Suspect]
     Active Substance: PROPOFOL
     Indication: General anaesthesia
     Dosage: 100 MILLIGRAMS (MG), UNSPECIFIED FREQUENCY
     Route: 042
     Dates: start: 20230307, end: 20230307
  5. CEFAZOLIN SODIUM [Suspect]
     Active Substance: CEFAZOLIN SODIUM
     Indication: Antibiotic prophylaxis
     Dosage: 2 GRAMS (G), UNSPECIFIED FREQUENCY
     Route: 042
     Dates: start: 20230307, end: 20230307
  6. DEXAMETHASONE [Suspect]
     Active Substance: DEXAMETHASONE
     Indication: Prophylaxis
     Dosage: 4 MILLIGRAMS (MG), UNSPECIFIED FREQUENCY
     Route: 042
     Dates: start: 20230307, end: 20230307
  7. SUFENTANIL [Suspect]
     Active Substance: SUFENTANIL
     Indication: Analgesic therapy
     Dosage: SUFENTANYL HAMELN, 20 MICROGRAM (UG), UNSPECIFIED FREQUENCY
     Route: 024
     Dates: start: 20230307, end: 20230307
  8. OMEPRAZOLE [Suspect]
     Active Substance: OMEPRAZOLE
     Indication: Prophylaxis against gastrointestinal ulcer
     Dosage: OMEPRAZOLE SANDOZ B, 40 MILLIGRAMS (MG), UNSPECIFIED FREQUENCY
     Route: 042
     Dates: start: 20230307, end: 20230307
  9. LEVOBUPIVACAINE HYDROCHLORIDE [Suspect]
     Active Substance: LEVOBUPIVACAINE HYDROCHLORIDE
     Indication: Epidural anaesthesia
     Dosage: LEVOBUPIVACAINE MOLTENI, 15 MILIGRAMS (MG), UNSPECIFIED FREQUENCY
     Route: 024
     Dates: start: 20230307, end: 20230307
  10. MIDAZOLAM HYDROCHLORIDE [Suspect]
     Active Substance: MIDAZOLAM HYDROCHLORIDE
     Indication: Sedation
     Dosage: 1 MILLIGRAMS (MG), UNSPECIFIED FREQUENCY
     Route: 042
     Dates: start: 20230307, end: 20230307

REACTIONS (3)
  - Pulseless electrical activity [Recovered/Resolved]
  - Bradycardia [Recovered/Resolved]
  - Cardiac arrest [Recovered/Resolved]

NARRATIVE: CASE EVENT DATE: 20230307
